FAERS Safety Report 8368201-8 (Version None)
Quarter: 2012Q2

REPORT INFORMATION
  Report Type: 
  Country: None (occurrence: None)
  Receive Date: 20120517
  Receipt Date: 20120510
  Transmission Date: 20120825
  Serious: Yes (Hospitalization)
  Sender: FDA-Public Use
  Company Number: US-CELGENEUS-163-21880-12041806

PATIENT
  Sex: Male
  Weight: 83.273 kg

DRUGS (15)
  1. REVLIMID [Suspect]
     Dosage: 5 MILLIGRAM
     Route: 048
     Dates: start: 20120410, end: 20120412
  2. REVLIMID [Suspect]
     Dosage: 5 MILLIGRAM
     Route: 048
     Dates: start: 20120423, end: 20120425
  3. ALLOPURINOL [Concomitant]
     Dosage: 300 MILLIGRAM
     Route: 048
  4. METOPROLOL SUCCINATE [Concomitant]
     Dosage: 100 MILLIGRAM
     Route: 048
  5. BACTRIM DS [Concomitant]
     Dosage: 1 TABLET
     Route: 048
  6. SEPTRA DS [Concomitant]
     Dosage: 1 TABLET
     Route: 048
  7. METOPROLOL SUCCINATE [Concomitant]
     Dosage: 75 MILLIGRAM
     Route: 048
  8. RITUXIMAB [Suspect]
     Route: 065
     Dates: start: 20120424
  9. ACYCLOVIR [Concomitant]
     Dosage: 400 MILLIGRAM
     Route: 048
  10. LEVOTHYROXINE SODIUM [Concomitant]
     Dosage: 100 MICROGRAM
     Route: 048
  11. ASPIRIN [Concomitant]
     Dosage: 81 MILLIGRAM
     Route: 048
  12. REVLIMID [Suspect]
     Dosage: 2.5 MILLIGRAM
     Route: 048
     Dates: start: 20120306
  13. RITUXIMAB [Suspect]
     Route: 065
  14. FLUCONAZOLE [Concomitant]
     Dosage: 100 MILLIGRAM
     Route: 048
  15. PREDNISONE [Concomitant]
     Dosage: 10 MILLIGRAM
     Route: 048

REACTIONS (3)
  - SYSTEMIC INFLAMMATORY RESPONSE SYNDROME [None]
  - ATRIAL FIBRILLATION [None]
  - HYPOTENSION [None]
